FAERS Safety Report 23359782 (Version 2)
Quarter: 2024Q1

REPORT INFORMATION
  Report Type: Spontaneous
  Country: IN (occurrence: IN)
  Receive Date: 20240103
  Receipt Date: 20240206
  Transmission Date: 20240409
  Serious: Yes (Other)
  Sender: FDA-Public Use
  Company Number: IN-002147023-NVSC2023IN253420

PATIENT
  Sex: Female

DRUGS (4)
  1. FULVESTRANT [Suspect]
     Active Substance: FULVESTRANT
     Indication: Product used for unknown indication
     Dosage: 500 MG (23RD MONTH DOSE)
     Route: 065
     Dates: start: 20231123
  2. FULVESTRANT [Suspect]
     Active Substance: FULVESTRANT
     Indication: Product used for unknown indication
     Dosage: 500 MG (23RD MONTH DOSE)
     Route: 065
  3. RIBOCICLIB [Suspect]
     Active Substance: RIBOCICLIB
     Dosage: 200 MG, TID
     Route: 048
     Dates: start: 20220112
  4. RIBOCICLIB [Suspect]
     Active Substance: RIBOCICLIB
     Indication: Product used for unknown indication
     Dosage: 600 MG  OTHER (ONCE DAILY FOR 21 DAYS FOLLOWED BY GAP OF 7 DAYS)
     Route: 048

REACTIONS (10)
  - Metastases to lung [Unknown]
  - Metastases to lymph nodes [Unknown]
  - Altered state of consciousness [Unknown]
  - Haemorrhagic cyst [Unknown]
  - Positron emission tomogram abnormal [Unknown]
  - Dyspnoea [Unknown]
  - Post procedural discharge [Unknown]
  - Pyrexia [Unknown]
  - Pain [Unknown]
  - Vomiting [Unknown]
